FAERS Safety Report 8207021-1 (Version None)
Quarter: 2012Q1

REPORT INFORMATION
  Report Type: 
  Country: None (occurrence: None)
  Receive Date: 20120314
  Receipt Date: 20120302
  Transmission Date: 20120608
  Serious: Yes (Hospitalization)
  Sender: FDA-Public Use
  Company Number: US-PERRIGO-12US001878

PATIENT
  Age: 27 Month
  Sex: Female

DRUGS (1)
  1. ACETAMINOPHEN [Suspect]
     Indication: ACCIDENTAL DRUG INTAKE BY CHILD
     Dosage: UNK, UNK
     Route: 048

REACTIONS (6)
  - METABOLIC ACIDOSIS [None]
  - COMA [None]
  - SOMNOLENCE [None]
  - OVERDOSE [None]
  - VOMITING [None]
  - ANALGESIC DRUG LEVEL INCREASED [None]
